FAERS Safety Report 19065513 (Version 3)
Quarter: 2022Q2

REPORT INFORMATION
  Report Type: Report from Study
  Country: CO (occurrence: CO)
  Receive Date: 20210327
  Receipt Date: 20220414
  Transmission Date: 20220721
  Serious: Yes (Life-Threatening, Hospitalization)
  Sender: FDA-Public Use
  Company Number: CO-NOVARTISPH-NVSC2021CO064854

PATIENT
  Sex: Male
  Weight: 74 kg

DRUGS (8)
  1. TASIGNA [Suspect]
     Active Substance: NILOTINIB
     Indication: Chronic myeloid leukaemia
     Dosage: UNK (24 MAR)
     Route: 048
  2. TASIGNA [Suspect]
     Active Substance: NILOTINIB
     Dosage: 400 MG (EVERY 12 HOURS)
     Route: 065
  3. TASIGNA [Suspect]
     Active Substance: NILOTINIB
     Dosage: 400 MG (EVERY 12 HOURS)
     Route: 065
     Dates: end: 20220324
  4. BOSUTINIB [Suspect]
     Active Substance: BOSUTINIB
     Indication: Chronic myeloid leukaemia
     Dosage: UNK, QD (1)
     Route: 065
     Dates: start: 20220325
  5. BOSUTINIB [Suspect]
     Active Substance: BOSUTINIB
     Dosage: 500 MG, QD
     Route: 048
     Dates: start: 20220325
  6. ENALAPRIL [Concomitant]
     Active Substance: ENALAPRIL
     Indication: Hypertension
     Dosage: 50 MG, QD
     Route: 048
  7. LOVASTATIN [Concomitant]
     Active Substance: LOVASTATIN
     Indication: Blood cholesterol
     Dosage: 20 MG, QD
     Route: 048
  8. LOVASTATIN [Concomitant]
     Active Substance: LOVASTATIN
     Indication: Blood triglycerides increased

REACTIONS (9)
  - Feeling abnormal [Recovering/Resolving]
  - Anger [Unknown]
  - Loss of consciousness [Unknown]
  - Drug intolerance [Unknown]
  - Cytogenetic analysis abnormal [Unknown]
  - Dizziness [Recovering/Resolving]
  - Diarrhoea [Recovering/Resolving]
  - Nausea [Recovering/Resolving]
  - Drug ineffective [Unknown]
